FAERS Safety Report 13148292 (Version 2)
Quarter: 2017Q1

REPORT INFORMATION
  Report Type: Spontaneous
  Country: BR (occurrence: BR)
  Receive Date: 20170125
  Receipt Date: 20170210
  Transmission Date: 20170428
  Serious: Yes (Other)
  Sender: FDA-Public Use
  Company Number: PHHY2017BR006964

PATIENT
  Age: 58 Year
  Sex: Female

DRUGS (2)
  1. TARVEXOL [Suspect]
     Active Substance: PACLITAXEL
     Indication: UTERINE CANCER
     Dosage: 308 MG IN 500 ML SALINE SOLUTION
     Route: 041
     Dates: start: 20161219
  2. SALINE [Concomitant]
     Active Substance: SODIUM CHLORIDE
     Indication: UTERINE CANCER
     Dosage: 500 ML, UNK
     Route: 065

REACTIONS (3)
  - Hyperaemia [Recovered/Resolved]
  - Flushing [Recovered/Resolved]
  - Back pain [Recovered/Resolved]

NARRATIVE: CASE EVENT DATE: 20161219
